FAERS Safety Report 7200302-X (Version None)
Quarter: 2010Q4

REPORT INFORMATION
  Report Type: 
  Country: None (occurrence: None)
  Receive Date: 20101228
  Receipt Date: 20101221
  Transmission Date: 20110411
  Serious: Yes (Hospitalization)
  Sender: FDA-Public Use
  Company Number: B0690293A

PATIENT
  Sex: Male

DRUGS (12)
  1. AUGMENTIN [Suspect]
     Indication: PRODUCT USED FOR UNKNOWN INDICATION
     Dosage: 1G THREE TIMES PER DAY
     Route: 048
     Dates: start: 20101104, end: 20101108
  2. AMOXICILLIN [Suspect]
     Indication: PRODUCT USED FOR UNKNOWN INDICATION
     Dosage: 1G THREE TIMES PER DAY
     Route: 048
     Dates: start: 20101023, end: 20101029
  3. BRICANYL [Suspect]
     Indication: PRODUCT USED FOR UNKNOWN INDICATION
     Dosage: 1UNIT THREE TIMES PER DAY
     Route: 055
     Dates: start: 20101108, end: 20101110
  4. ATROVENT [Suspect]
     Indication: PRODUCT USED FOR UNKNOWN INDICATION
     Dosage: 1UNIT THREE TIMES PER DAY
     Route: 055
     Dates: start: 20101108, end: 20101110
  5. SYMBICORT [Suspect]
     Indication: PRODUCT USED FOR UNKNOWN INDICATION
     Dosage: 1UNIT THREE TIMES PER DAY
     Route: 055
     Dates: start: 20101108, end: 20101108
  6. CIPROFLOXACIN HYDROCHLORIDE [Suspect]
     Indication: PRODUCT USED FOR UNKNOWN INDICATION
     Dosage: 250MG TWICE PER DAY
     Route: 048
     Dates: start: 20101104, end: 20101108
  7. NEO-CODION [Suspect]
     Indication: PRODUCT USED FOR UNKNOWN INDICATION
     Dosage: 1UNIT THREE TIMES PER DAY
     Route: 048
     Dates: start: 20101104, end: 20101108
  8. TRAMADOL [Suspect]
     Indication: PRODUCT USED FOR UNKNOWN INDICATION
     Route: 048
     Dates: start: 20101029, end: 20101108
  9. OMEPRAZOLE [Suspect]
     Indication: PRODUCT USED FOR UNKNOWN INDICATION
     Dosage: 10MG PER DAY
     Route: 048
     Dates: start: 20101029, end: 20101104
  10. KETOPROFEN [Suspect]
     Indication: PRODUCT USED FOR UNKNOWN INDICATION
     Dosage: 100MG TWICE PER DAY
     Route: 048
     Dates: start: 20101029, end: 20101104
  11. DIMETANE [Suspect]
     Indication: PRODUCT USED FOR UNKNOWN INDICATION
     Route: 048
     Dates: start: 20101023, end: 20101029
  12. CORTANCYL [Suspect]
     Indication: PRODUCT USED FOR UNKNOWN INDICATION
     Dosage: 20MG PER DAY
     Route: 048
     Dates: start: 20101023, end: 20101027

REACTIONS (3)
  - LEUKOCYTOCLASTIC VASCULITIS [None]
  - PROTEINURIA [None]
  - PURPURA [None]
